FAERS Safety Report 8936073 (Version 1)
Quarter: 2012Q4

REPORT INFORMATION
  Report Type: Report from Study
  Country: GB (occurrence: GB)
  Receive Date: 20121130
  Receipt Date: 20121130
  Transmission Date: 20130627
  Serious: Yes (Hospitalization)
  Sender: FDA-Public Use
  Company Number: GB-PFIZER INC-2012296058

PATIENT
  Age: 39 Year
  Sex: Female
  Weight: 80.6 kg

DRUGS (5)
  1. EPIRUBICIN HCL [Suspect]
     Indication: MALIGNANT BREAST NEOPLASM
     Dosage: 180 mg, 1x/day
     Route: 042
     Dates: start: 20121010
  2. CYCLOPHOSPHAMIDE [Suspect]
     Indication: MALIGNANT BREAST NEOPLASM
     Dosage: 900 mg, 1x/day
     Route: 042
     Dates: start: 20121010
  3. FLUOROURACIL [Suspect]
     Indication: MALIGNANT BREAST NEOPLASM
     Dosage: 900 mg, 1x/day
     Route: 042
     Dates: start: 20121010
  4. LANSOPRAZOLE [Concomitant]
     Dosage: UNK
  5. METOCLOPRAMIDE [Concomitant]
     Dosage: UNK

REACTIONS (1)
  - Malaise [Recovered/Resolved]
